FAERS Safety Report 5560317-4 (Version None)
Quarter: 2007Q4

REPORT INFORMATION
  Report Type: 
  Country: None (occurrence: None)
  Receive Date: 20071214
  Receipt Date: 20071119
  Transmission Date: 20080405
  Serious: No
  Sender: FDA-Public Use
  Company Number: US-ABBOTT-07P-163-0423877-00

PATIENT
  Age: 52 Year
  Sex: Male

DRUGS (2)
  1. HUMIRA [Suspect]
     Indication: DRUG USE FOR UNKNOWN INDICATION
     Route: 058
     Dates: start: 20070801
  2. HUMIRA [Suspect]
     Route: 058

REACTIONS (4)
  - DIZZINESS [None]
  - HEADACHE [None]
  - PHOTOPHOBIA [None]
  - SINUS HEADACHE [None]
